FAERS Safety Report 8504036-0 (Version None)
Quarter: 2012Q3

REPORT INFORMATION
  Report Type: 
  Country: None (occurrence: None)
  Receive Date: 20120711
  Receipt Date: 20120704
  Transmission Date: 20120928
  Serious: Yes (Hospitalization)
  Sender: FDA-Public Use
  Company Number: DE-ELI_LILLY_AND_COMPANY-DE201207001822

PATIENT
  Age: 77 Year
  Sex: Female
  Weight: 58 kg

DRUGS (4)
  1. EFFIENT [Suspect]
     Dosage: 10 MG, QD
     Dates: start: 20111105, end: 20120228
  2. ASPIRIN [Concomitant]
     Dosage: UNK, OTHER
     Dates: start: 20111104, end: 20111104
  3. EFFIENT [Suspect]
     Indication: ANGINA PECTORIS
     Dosage: 60 MG, QD
     Dates: start: 20111104, end: 20111104
  4. ASPIRIN [Concomitant]
     Dosage: 10 MG, QD
     Dates: start: 20111105

REACTIONS (3)
  - DYSPEPSIA [None]
  - GASTROINTESTINAL ULCER [None]
  - GASTRITIS [None]
